FAERS Safety Report 10242848 (Version 3)
Quarter: 2014Q3

REPORT INFORMATION
  Report Type: Spontaneous
  Country: US (occurrence: US)
  Receive Date: 20140618
  Receipt Date: 20140923
  Transmission Date: 20150326
  Serious: Yes (Hospitalization, Other)
  Sender: FDA-Public Use
  Company Number: US-UCBSA-2014001718

PATIENT
  Age: 54 Year
  Sex: Female
  Weight: 124.7 kg

DRUGS (8)
  1. ASPIRIN. [Concomitant]
     Active Substance: ASPIRIN
     Dosage: 81 MG, ONCE DAILY (QD) (TOTAL DAILY DOSE IS 1 TAB)
     Route: 048
  2. GLYBURIDE. [Concomitant]
     Active Substance: GLYBURIDE
     Dosage: 1 TAB, 2X/DAY (BID) (2 TABS AT DAILY DOSE) SEVERAL DAYS
     Route: 048
  3. TOPAMAX [Concomitant]
     Active Substance: TOPIRAMATE
     Indication: CONVULSION
     Dosage: 250 MG, 2X/DAY (BID) SINCE CHILDHOOD TAKING
     Route: 048
  4. KEPPRA XR [Suspect]
     Active Substance: LEVETIRACETAM
     Indication: CONVULSION
     Dosage: 2 DF, 2X/DAY (BID)
     Route: 048
     Dates: start: 201307, end: 201402
  5. KEPPRA XR [Suspect]
     Active Substance: LEVETIRACETAM
     Dosage: 500 MG, ONE TAB IN AM AND TWO TABS IN PM
     Route: 048
     Dates: start: 2014
  6. PRAVASTATIN [Concomitant]
     Active Substance: PRAVASTATIN\PRAVASTATIN SODIUM
     Dosage: 1TAB , ONCE DAILY (QD) TAKING FROM SEVERAL YEARS
     Route: 048
  7. KEPPRA XR [Suspect]
     Active Substance: LEVETIRACETAM
     Dosage: 1500 MG, 2X/DAY (BID), (3 TABS, TWICE DAILY)
     Route: 048
     Dates: start: 201402, end: 2014
  8. LISINOPRIL. [Concomitant]
     Active Substance: LISINOPRIL
     Dosage: 1 TAB, 2X/DAY (BID) ( 2 TABS DAILY DOSE) STARTED FROM SEVERAL YEAR
     Route: 048

REACTIONS (9)
  - Back injury [Not Recovered/Not Resolved]
  - Visual impairment [Not Recovered/Not Resolved]
  - Respiratory arrest [Unknown]
  - Generalised tonic-clonic seizure [Recovered/Resolved]
  - Fall [Not Recovered/Not Resolved]
  - Inappropriate schedule of drug administration [Unknown]
  - Cerebrovascular accident [Recovered/Resolved with Sequelae]
  - Petit mal epilepsy [Recovered/Resolved]
  - Muscular weakness [Not Recovered/Not Resolved]

NARRATIVE: CASE EVENT DATE: 201307
